FAERS Safety Report 24249641 (Version 2)
Quarter: 2024Q4

REPORT INFORMATION
  Report Type: Spontaneous
  Country: US (occurrence: US)
  Receive Date: 20240826
  Receipt Date: 20241004
  Transmission Date: 20250114
  Serious: No
  Sender: SANOFI AVENTIS
  Company Number: US-SA-SAC20240819000887

PATIENT
  Age: 2 Year
  Sex: Female

DRUGS (1)
  1. DUPIXENT [Suspect]
     Active Substance: DUPILUMAB
     Indication: Eczema
     Dosage: 200 MG, QM
     Route: 058
     Dates: start: 20240723

REACTIONS (6)
  - Dry skin [Not Recovered/Not Resolved]
  - Sensitive skin [Not Recovered/Not Resolved]
  - Skin irritation [Not Recovered/Not Resolved]
  - Pruritus [Not Recovered/Not Resolved]
  - Erythema [Not Recovered/Not Resolved]
  - Eczema [Not Recovered/Not Resolved]

NARRATIVE: CASE EVENT DATE: 20240101
